FAERS Safety Report 7073653-X (Version None)
Quarter: 2010Q4

REPORT INFORMATION
  Report Type: 
  Country: None (occurrence: None)
  Receive Date: 20101029
  Receipt Date: 20100726
  Transmission Date: 20110411
  Serious: No
  Sender: FDA-Public Use
  Company Number: A0872345A

PATIENT
  Sex: Female

DRUGS (3)
  1. ADVAIR DISKUS 100/50 [Suspect]
     Indication: ASTHMA
     Route: 055
  2. SINGULAIR [Concomitant]
  3. ACETAMINOPHEN [Concomitant]

REACTIONS (6)
  - DIZZINESS [None]
  - NAUSEA [None]
  - NIGHTMARE [None]
  - SUFFOCATION FEELING [None]
  - VERTIGO [None]
  - VISION BLURRED [None]
